FAERS Safety Report 12346451 (Version 1)
Quarter: 2016Q2

REPORT INFORMATION
  Report Type: Spontaneous
  Country: US (occurrence: None)
  Receive Date: 20160506
  Receipt Date: 20160506
  Transmission Date: 20160815
  Serious: No
  Sender: FDA-Public Use
  Company Number: None

PATIENT
  Age: 50 Year
  Sex: Female

DRUGS (9)
  1. RIZATRIPTAN. [Concomitant]
     Active Substance: RIZATRIPTAN
  2. QUETIAPINE. [Concomitant]
     Active Substance: QUETIAPINE
  3. AMPYRA [Suspect]
     Active Substance: DALFAMPRIDINE
     Indication: MULTIPLE SCLEROSIS
     Route: 048
     Dates: start: 201101
  4. DIVALPROEX [Concomitant]
     Active Substance: DIVALPROEX SODIUM
  5. RITUXAN [Concomitant]
     Active Substance: RITUXIMAB
  6. BACLOFEN. [Concomitant]
     Active Substance: BACLOFEN
  7. TAMSULOSIN [Concomitant]
     Active Substance: TAMSULOSIN
  8. TOPIRAMATE. [Concomitant]
     Active Substance: TOPIRAMATE
  9. OXYBUTYNIN [Concomitant]
     Active Substance: OXYBUTYNIN

REACTIONS (1)
  - Urinary tract infection [None]

NARRATIVE: CASE EVENT DATE: 20160420
